FAERS Safety Report 4951562-7 (Version None)
Quarter: 2006Q1

REPORT INFORMATION
  Report Type: 
  Country: None (occurrence: None)
  Receive Date: 20060323
  Receipt Date: 20060307
  Transmission Date: 20060701
  Serious: Yes (Other)
  Sender: FDA-Public Use
  Company Number: PHEH2006US03149

PATIENT
  Age: 50 Year
  Sex: Male

DRUGS (1)
  1. RITALIN [Suspect]
     Indication: ATTENTION DEFICIT/HYPERACTIVITY DISORDER
     Dosage: 20 MG, TID
     Route: 048
     Dates: start: 19960101

REACTIONS (10)
  - ASTHENIA [None]
  - CLOSTRIDIAL INFECTION [None]
  - DYSPNOEA [None]
  - EXTRASYSTOLES [None]
  - HEARING IMPAIRED [None]
  - HYPOAESTHESIA [None]
  - LYME DISEASE [None]
  - NEOPLASM MALIGNANT [None]
  - OSTEOMYELITIS [None]
  - TOOTH INFECTION [None]
